FAERS Safety Report 6915533-3 (Version None)
Quarter: 2010Q3

REPORT INFORMATION
  Report Type: 
  Country: None (occurrence: None)
  Receive Date: 20100804
  Receipt Date: 20100723
  Transmission Date: 20110219
  Serious: Yes (Other)
  Sender: FDA-Public Use
  Company Number: WAES1007USA03239

PATIENT
  Sex: Male

DRUGS (8)
  1. CRIXIVAN [Suspect]
     Dosage: PO
     Route: 048
  2. NORVIR [Suspect]
  3. REYATAZ [Suspect]
  4. TRUVADA [Suspect]
  5. VIRACEPT [Suspect]
  6. VIREAD [Suspect]
  7. ZERIT [Suspect]
  8. ZIAGEN [Suspect]

REACTIONS (6)
  - ABDOMINAL PAIN [None]
  - BLOOD CHOLESTEROL INCREASED [None]
  - DIARRHOEA [None]
  - FATIGUE [None]
  - LIPODYSTROPHY ACQUIRED [None]
  - OSTEOPOROSIS [None]
